FAERS Safety Report 7000508-9 (Version None)
Quarter: 2010Q3

REPORT INFORMATION
  Report Type: 
  Country: None (occurrence: None)
  Receive Date: 20100920
  Receipt Date: 20070816
  Transmission Date: 20110219
  Serious: Yes (Hospitalization)
  Sender: FDA-Public Use
  Company Number: US-ASTRAZENECA-2007UW06031

PATIENT
  Age: 17930 Day
  Sex: Female
  Weight: 76.2 kg

DRUGS (15)
  1. SEROQUEL [Suspect]
     Indication: MAJOR DEPRESSION
     Dosage: 25-300 MG
     Route: 048
     Dates: start: 19980701
  2. SEROQUEL [Suspect]
     Dosage: 300-600
     Route: 048
     Dates: start: 19980903, end: 20020901
  3. SEROQUEL [Suspect]
     Dosage: 25 MG - 600 MG
     Route: 048
     Dates: start: 19980903, end: 20020725
  4. SEROQUEL [Suspect]
     Route: 048
     Dates: start: 19980903
  5. ZYPREXA [Concomitant]
     Dates: start: 19980701, end: 19980901
  6. RISPERDAL [Concomitant]
     Dates: start: 19980601
  7. ABILIFY [Concomitant]
     Dates: start: 20031121
  8. HALDOL [Concomitant]
     Dates: start: 20061014
  9. EFFEXOR [Concomitant]
     Dates: start: 19980101
  10. XANAX [Concomitant]
     Dates: start: 19980101
  11. LITHIUM [Concomitant]
     Dates: start: 20070101, end: 20070101
  12. TRAZODONE HCL [Concomitant]
     Dates: start: 20070101
  13. REMEROL [Concomitant]
     Dates: start: 20040101, end: 20040101
  14. SERZONE [Concomitant]
     Route: 048
     Dates: start: 19980903
  15. SYNTHROID [Concomitant]
     Dates: start: 19980101

REACTIONS (3)
  - CHEST PAIN [None]
  - DIABETES MELLITUS [None]
  - TYPE 2 DIABETES MELLITUS [None]
